FAERS Safety Report 9200024 (Version 2)
Quarter: 2013Q2

REPORT INFORMATION
  Report Type: Report from Study
  Country: JP (occurrence: JP)
  Receive Date: 20130329
  Receipt Date: 20130430
  Transmission Date: 20140414
  Serious: Yes (Other)
  Sender: FDA-Public Use
  Company Number: JP-GLAXOSMITHKLINE-B0878515A

PATIENT
  Age: 75 Year
  Sex: Male

DRUGS (6)
  1. AVOLVE [Suspect]
     Indication: BENIGN PROSTATIC HYPERPLASIA
     Dosage: .5MG PER DAY
     Route: 048
     Dates: start: 20111205, end: 20120116
  2. URIEF [Concomitant]
     Indication: BENIGN PROSTATIC HYPERPLASIA
     Route: 048
     Dates: start: 20111205
  3. CASODEX [Concomitant]
     Route: 048
     Dates: start: 20120116, end: 20121010
  4. HYPEN [Concomitant]
     Route: 048
     Dates: start: 20120116, end: 20121010
  5. LEUPLIN [Concomitant]
     Route: 058
     Dates: start: 20120130, end: 20121010
  6. URITOS [Concomitant]
     Indication: HYPERTONIC BLADDER
     Route: 048
     Dates: start: 20121219

REACTIONS (1)
  - Prostate cancer [Recovering/Resolving]
